FAERS Safety Report 8570771-1 (Version None)
Quarter: 2012Q3

REPORT INFORMATION
  Report Type: 
  Country: None (occurrence: None)
  Receive Date: 20120805
  Receipt Date: 20120723
  Transmission Date: 20120928
  Serious: No
  Sender: FDA-Public Use
  Company Number: US-009507513-1207USA010735

PATIENT

DRUGS (5)
  1. FLOVENT [Suspect]
  2. OXYCODONE HCL [Suspect]
  3. ZOCOR [Suspect]
     Route: 048
  4. PENICILLIN G POTASSIUM [Suspect]
  5. DEMEROL [Suspect]

REACTIONS (2)
  - FAMILIAL RISK FACTOR [None]
  - DRUG HYPERSENSITIVITY [None]
